FAERS Safety Report 18460110 (Version 1)
Quarter: 2020Q4

REPORT INFORMATION
  Report Type: Other
  Country: CA (occurrence: CA)
  Receive Date: 20201104
  Receipt Date: 20201104
  Transmission Date: 20210114
  Serious: Yes (Other)
  Sender: FDA-Public Use
  Company Number: CA-CELLTRION INC.-2020CA030004

PATIENT

DRUGS (12)
  1. RITUXIMAB (UNKNOWN) [Suspect]
     Active Substance: RITUXIMAB
     Indication: PRODUCT USED FOR UNKNOWN INDICATION
     Dosage: UNK
     Route: 065
  2. ACTEMRA [Suspect]
     Active Substance: TOCILIZUMAB
     Indication: CASTLEMAN^S DISEASE
     Dosage: 432 MG, 1 EVERY 4 WEEKS
     Route: 042
  3. JANUVIA [Concomitant]
     Active Substance: SITAGLIPTIN PHOSPHATE
     Dosage: 100 MILLIGRAM, 1 EVERY 1 DAY
     Route: 048
  4. RISEDRONATE [Concomitant]
     Active Substance: RISEDRONATE SODIUM
     Dosage: 35 MILLIGRAM, 1 EVERY 1 WEEK
     Route: 048
  5. DEXILANT [Concomitant]
     Active Substance: DEXLANSOPRAZOLE
     Dosage: 60 MG, 1 EVERY 1 DAY
     Route: 048
  6. ACTEMRA [Suspect]
     Active Substance: TOCILIZUMAB
     Indication: CASTLEMAN^S DISEASE
     Dosage: UNK, 1 EVERY 4 WEEKS
     Route: 042
  7. HYDROXYCHLOROQUINE SULFATE. [Concomitant]
     Active Substance: HYDROXYCHLOROQUINE SULFATE
     Dosage: 200 MILLIGRAM, 1 EVERY 1 DAY
     Route: 048
  8. LASIX [Concomitant]
     Active Substance: FUROSEMIDE
     Dosage: 10 MILLIGRAM, 2 EVERY 1 DAY
     Route: 048
  9. METFORMIN [Concomitant]
     Active Substance: METFORMIN HYDROCHLORIDE
     Dosage: 1000 MILLIGRAM, 2 EVERY 1 DAY
     Route: 048
  10. MOTILIUM [Concomitant]
     Active Substance: DOMPERIDONE
     Dosage: 10 MILLIGRAM, 2 EVERY 1 DAY
     Route: 048
  11. PREDNISONE. [Concomitant]
     Active Substance: PREDNISONE
     Dosage: 15 MILLIGRAM, 1 EVERY 1 DAY
     Route: 048
  12. SALINEX [SODIUM CHLORIDE] [Concomitant]
     Active Substance: SODIUM CHLORIDE
     Dosage: UNK, 3 EVERY 1 DAY
     Route: 045

REACTIONS (4)
  - Intentional product use issue [Recovered/Resolved]
  - Off label use [Recovered/Resolved]
  - Anaphylactic reaction [Recovered/Resolved]
  - Bronchitis [Recovered/Resolved]
